FAERS Safety Report 7677434-5 (Version None)
Quarter: 2011Q3

REPORT INFORMATION
  Report Type: 
  Country: None (occurrence: None)
  Receive Date: 20110811
  Receipt Date: 20101012
  Transmission Date: 20111222
  Serious: Yes (Other)
  Sender: FDA-Public Use
  Company Number: US-BRISTOL-MYERS SQUIBB COMPANY-15319510

PATIENT
  Age: 40 Year
  Sex: Female

DRUGS (5)
  1. LIPOVITE [Suspect]
     Indication: LIPOATROPHY
     Route: 042
  2. REYATAZ [Suspect]
     Dosage: DURATION: FOR AT LEAST 5 YRS
     Dates: start: 20100301
  3. PHENTERMINE [Suspect]
     Indication: DECREASED APPETITE
     Dosage: 1 DF:1 PILL
  4. MAXZIDE [Concomitant]
     Dosage: 1 DF:1/2 PILL PER DAY
  5. NORVIR [Suspect]
     Dosage: DURATION: FOR AT LEAST 5 YRS

REACTIONS (1)
  - VIRAL LOAD INCREASED [None]
